FAERS Safety Report 7262985-8 (Version None)
Quarter: 2011Q1

REPORT INFORMATION
  Report Type: 
  Country: None (occurrence: None)
  Receive Date: 20110130
  Receipt Date: 20101013
  Transmission Date: 20110831
  Serious: No
  Sender: FDA-Public Use
  Company Number: US-ABBOTT-10P-163-0678886-00

PATIENT
  Sex: Female
  Weight: 59.02 kg

DRUGS (4)
  1. HUMIRA [Suspect]
     Indication: CROHN'S DISEASE
     Dosage: 4X40MG LOADING DOSE
     Route: 058
     Dates: start: 20101012
  2. PREDNISONE [Concomitant]
     Indication: CROHN'S DISEASE
     Route: 048
     Dates: end: 20101012
  3. MONESSA [Concomitant]
     Indication: ORAL CONTRACEPTION
     Route: 048
  4. MULTI-VITAMIN [Concomitant]
     Indication: VITAMIN SUPPLEMENTATION
     Route: 048

REACTIONS (7)
  - DIZZINESS [None]
  - HEADACHE [None]
  - VISION BLURRED [None]
  - ABDOMINAL PAIN [None]
  - FUNGAL INFECTION [None]
  - DISSOCIATION [None]
  - DIARRHOEA [None]
